FAERS Safety Report 16878913 (Version 12)
Quarter: 2022Q2

REPORT INFORMATION
  Report Type: Report from Study
  Country: JP (occurrence: JP)
  Receive Date: 20191002
  Receipt Date: 20220426
  Transmission Date: 20220721
  Serious: Yes (Death, Hospitalization, Other)
  Sender: FDA-Public Use
  Company Number: JP-TAKEDA-2019TJP017669AA

PATIENT
  Age: 43 Year
  Sex: Male
  Weight: 70.3 kg

DRUGS (46)
  1. VEDOLIZUMAB [Suspect]
     Active Substance: VEDOLIZUMAB
     Indication: Prophylaxis against graft versus host disease
     Dosage: UNK
     Route: 042
     Dates: start: 20190619, end: 20190619
  2. VEDOLIZUMAB [Suspect]
     Active Substance: VEDOLIZUMAB
     Dosage: UNK
     Route: 042
     Dates: start: 20190703, end: 20190703
  3. VEDOLIZUMAB [Suspect]
     Active Substance: VEDOLIZUMAB
     Dosage: UNK
     Route: 042
     Dates: start: 20190927, end: 20190927
  4. VEDOLIZUMAB [Suspect]
     Active Substance: VEDOLIZUMAB
     Dosage: UNK
     Route: 042
     Dates: start: 20191023, end: 20191023
  5. METHOTREXATE [Suspect]
     Active Substance: METHOTREXATE
     Indication: Prophylaxis against graft versus host disease
     Dosage: UNK
     Route: 042
     Dates: start: 20190621, end: 20190626
  6. TACROLIMUS [Suspect]
     Active Substance: TACROLIMUS
     Indication: Prophylaxis against graft versus host disease
     Dosage: UNK
     Route: 042
     Dates: start: 20190619, end: 20191006
  7. TACROLIMUS [Suspect]
     Active Substance: TACROLIMUS
     Dosage: UNK
     Route: 048
     Dates: start: 20191007
  8. LAPINE T-LYMPHOCYTE IMMUNE GLOBULIN [Suspect]
     Active Substance: LAPINE T-LYMPHOCYTE IMMUNE GLOBULIN
     Indication: Prophylaxis against graft versus host disease
     Dosage: UNK
     Route: 042
     Dates: start: 20190618, end: 20190618
  9. URSODIOL [Concomitant]
     Active Substance: URSODIOL
     Indication: Prophylaxis
     Dosage: 200 MILLIGRAM, TID
     Route: 048
     Dates: start: 20190712, end: 20190814
  10. URSODIOL [Concomitant]
     Active Substance: URSODIOL
     Dosage: 100 MILLIGRAM, TID
     Route: 048
     Dates: start: 20190815, end: 20191009
  11. LANSOPRAZOLE [Concomitant]
     Active Substance: LANSOPRAZOLE
     Indication: Gastritis prophylaxis
     Dosage: 15 MILLIGRAM, QD
     Route: 048
     Dates: start: 20190715, end: 20200101
  12. MAGNESIUM SULFATE [Concomitant]
     Active Substance: MAGNESIUM SULFATE
     Indication: Electrolyte substitution therapy
     Dosage: 10 MILLIEQUIVALENT, QD
     Route: 042
     Dates: start: 20190722, end: 20190820
  13. ACYCLOVIR [Concomitant]
     Active Substance: ACYCLOVIR
     Indication: Infection prophylaxis
     Dosage: 200 MILLIGRAM, QD
     Route: 048
     Dates: start: 20190723, end: 20200101
  14. ACYCLOVIR [Concomitant]
     Active Substance: ACYCLOVIR
     Dosage: 250 MILLIGRAM, QD
     Route: 042
     Dates: start: 20191125, end: 20191211
  15. DEXTROSE\SODIUM CHLORIDE\SODIUM LACTATE [Concomitant]
     Active Substance: DEXTROSE\SODIUM CHLORIDE\SODIUM LACTATE
     Indication: Prophylaxis
     Dosage: 1000 MILLILITER, QD
     Route: 042
     Dates: start: 20190725, end: 20190725
  16. DEXTROSE\SODIUM CHLORIDE\SODIUM LACTATE [Concomitant]
     Active Substance: DEXTROSE\SODIUM CHLORIDE\SODIUM LACTATE
     Dosage: 2000 MILLILITER, QD
     Route: 042
     Dates: start: 20190730, end: 20190914
  17. DEXTROSE\SODIUM CHLORIDE\SODIUM LACTATE [Concomitant]
     Active Substance: DEXTROSE\SODIUM CHLORIDE\SODIUM LACTATE
     Dosage: 500 MILLILITER, QD
     Route: 042
     Dates: start: 20191122, end: 20191211
  18. HYDROCORTISONE SODIUM SUCCINATE [Concomitant]
     Active Substance: HYDROCORTISONE SODIUM SUCCINATE
     Indication: Allergy prophylaxis
     Dosage: 100 MILLIGRAM
     Route: 042
     Dates: start: 20190727, end: 20200101
  19. HYALURONATE SODIUM [Concomitant]
     Active Substance: HYALURONATE SODIUM
     Indication: Prophylaxis
     Dosage: 1 GTT DROPS
     Route: 047
     Dates: start: 20191115, end: 20200101
  20. DEXTROMETHORPHAN HYDROBROMIDE [Concomitant]
     Active Substance: DEXTROMETHORPHAN HYDROBROMIDE
     Indication: Cough
     Dosage: 15 MILLIGRAM, TID
     Route: 048
     Dates: start: 20190725, end: 20200801
  21. INSULIN HUMAN [Concomitant]
     Active Substance: INSULIN HUMAN
     Indication: Prophylaxis
     Dosage: UNK, QD
     Route: 042
     Dates: start: 20190725, end: 20190802
  22. INSULIN HUMAN [Concomitant]
     Active Substance: INSULIN HUMAN
     Dosage: UNK, QD
     Route: 042
     Dates: start: 20191127, end: 20200101
  23. AMINO ACIDS\DEXTROSE\ELECTROLYTES NOS\MINERALS\VITAMINS [Concomitant]
     Active Substance: AMINO ACIDS\DEXTROSE\ELECTROLYTES NOS\MINERALS\VITAMINS
     Indication: Prophylaxis
     Dosage: 1000 MILLILITER, QD
     Route: 042
     Dates: start: 20190725, end: 20190804
  24. AMINO ACIDS, SOURCE UNSPECIFIED [Concomitant]
     Active Substance: AMINO ACIDS, SOURCE UNSPECIFIED
     Indication: Prophylaxis
     Dosage: 200 MILLILITER, QD
     Route: 042
     Dates: start: 20191122, end: 20191211
  25. VITAJECT                           /07504101/ [Concomitant]
     Indication: Prophylaxis
     Dosage: 10 MILLILITER, QD
     Route: 042
     Dates: start: 20191122, end: 20191211
  26. CUPRIC SULFATE\FERRIC CHLORIDE\MANGANESE CHLORIDE\POTASSIUM IODIDE\ZIN [Concomitant]
     Active Substance: CUPRIC SULFATE\FERRIC CHLORIDE\MANGANESE CHLORIDE\POTASSIUM IODIDE\ZINC SULFATE
     Indication: Prophylaxis
     Dosage: 2 MILLILITER, QD
     Route: 042
     Dates: start: 20191122, end: 20191211
  27. OMEPRAZOLE                         /00661202/ [Concomitant]
     Indication: Gastritis prophylaxis
     Dosage: 20 MILLIGRAM, BID
     Route: 042
     Dates: start: 20191124, end: 20191207
  28. OMEPRAZOLE                         /00661202/ [Concomitant]
     Dosage: 20 MILLIGRAM, QD
     Route: 042
     Dates: start: 20191208, end: 20200101
  29. ZOSYN [Concomitant]
     Active Substance: PIPERACILLIN SODIUM\TAZOBACTAM SODIUM
     Indication: Infection prophylaxis
     Dosage: 4.5 MILLIGRAM, BID
     Route: 042
     Dates: start: 20191124, end: 20191124
  30. ZOSYN [Concomitant]
     Active Substance: PIPERACILLIN SODIUM\TAZOBACTAM SODIUM
     Dosage: 4.5 MILLIGRAM, TID
     Route: 042
     Dates: start: 20191125, end: 20191227
  31. BUTYLSCOPOLAMINE BROMIDE [Concomitant]
     Active Substance: BUTYLSCOPOLAMINE BROMIDE
     Indication: Gastritis prophylaxis
     Dosage: 20 MILLIGRAM, BID
     Route: 042
     Dates: start: 20191125, end: 20191125
  32. BUTYLSCOPOLAMINE BROMIDE [Concomitant]
     Active Substance: BUTYLSCOPOLAMINE BROMIDE
     Dosage: 20 MILLIGRAM, QD
     Route: 042
     Dates: start: 20191127, end: 20191127
  33. BUTYLSCOPOLAMINE BROMIDE [Concomitant]
     Active Substance: BUTYLSCOPOLAMINE BROMIDE
     Dosage: 20 MILLIGRAM, BID
     Route: 042
     Dates: start: 20191128, end: 20191128
  34. BUTYLSCOPOLAMINE BROMIDE [Concomitant]
     Active Substance: BUTYLSCOPOLAMINE BROMIDE
     Dosage: 20 MILLIGRAM, QD
     Route: 042
     Dates: start: 20191129, end: 20191129
  35. DEXCHLORPHENIRAMINE MALEATE [Concomitant]
     Active Substance: DEXCHLORPHENIRAMINE MALEATE
     Indication: Allergy prophylaxis
     Dosage: 5 MILLIGRAM, QD
     Route: 042
     Dates: start: 20191125, end: 20191125
  36. DEXCHLORPHENIRAMINE MALEATE [Concomitant]
     Active Substance: DEXCHLORPHENIRAMINE MALEATE
     Dosage: 5 MILLIGRAM, QD
     Route: 042
     Dates: start: 20191128, end: 20191128
  37. DEXCHLORPHENIRAMINE MALEATE [Concomitant]
     Active Substance: DEXCHLORPHENIRAMINE MALEATE
     Dosage: 5 MILLIGRAM, QD
     Route: 042
     Dates: start: 20191202, end: 20191202
  38. DEXCHLORPHENIRAMINE MALEATE [Concomitant]
     Active Substance: DEXCHLORPHENIRAMINE MALEATE
     Dosage: 5 MILLIGRAM, QD
     Route: 042
     Dates: start: 20191205, end: 20191205
  39. DEXCHLORPHENIRAMINE MALEATE [Concomitant]
     Active Substance: DEXCHLORPHENIRAMINE MALEATE
     Dosage: 5 MILLIGRAM, QD
     Route: 042
     Dates: start: 20191209, end: 20191209
  40. DEXCHLORPHENIRAMINE MALEATE [Concomitant]
     Active Substance: DEXCHLORPHENIRAMINE MALEATE
     Dosage: 5 MILLIGRAM, QD
     Route: 042
     Dates: start: 20191212, end: 20191212
  41. GANCICLOVIR [Concomitant]
     Active Substance: GANCICLOVIR
     Indication: Prophylaxis
     Dosage: 300 MILLIGRAM, QD
     Route: 042
     Dates: start: 20191127, end: 20191216
  42. CARBAZOCHROME SODIUM SULFONATE [Concomitant]
     Active Substance: CARBAZOCHROME SODIUM SULFONATE
     Indication: Haemorrhage prophylaxis
     Dosage: 100 MILLIGRAM, QD
     Route: 042
     Dates: start: 20191129, end: 20191216
  43. POTASSIUM ASPARTATE [Concomitant]
     Active Substance: POTASSIUM ASPARTATE
     Indication: Prophylaxis
     Dosage: 10 MILLILITER, QD
     Route: 042
     Dates: start: 20191127, end: 20191128
  44. POTASSIUM ASPARTATE [Concomitant]
     Active Substance: POTASSIUM ASPARTATE
     Dosage: 10 MILLILITER, QD
     Route: 042
     Dates: start: 20191212, end: 20191212
  45. CANRENOATE POTASSIUM [Concomitant]
     Active Substance: CANRENOATE POTASSIUM
     Indication: Prophylaxis
     Dosage: 100 MILLIGRAM, QD
     Route: 042
     Dates: start: 20191218, end: 20191218
  46. CANRENOATE POTASSIUM [Concomitant]
     Active Substance: CANRENOATE POTASSIUM
     Dosage: 100 MILLIGRAM, BID
     Route: 042
     Dates: start: 20191219, end: 20200101

REACTIONS (4)
  - Bronchopulmonary aspergillosis [Recovering/Resolving]
  - Acute graft versus host disease in liver [Fatal]
  - Acute graft versus host disease in liver [Recovered/Resolved]
  - Acute graft versus host disease in intestine [Not Recovered/Not Resolved]

NARRATIVE: CASE EVENT DATE: 20190725
